FAERS Safety Report 4537150-5 (Version None)
Quarter: 2004Q4

REPORT INFORMATION
  Report Type: 
  Country: None (occurrence: None)
  Receive Date: 20041223
  Receipt Date: 20041108
  Transmission Date: 20050328
  Serious: Yes (Hospitalization)
  Sender: FDA-Public Use
  Company Number: PHRM2004FR03308

PATIENT
  Age: 67 Year
  Sex: Male

DRUGS (4)
  1. VASTAREL [Concomitant]
     Dosage: 35 MG, BID
     Route: 048
  2. SERETIDE [Concomitant]
     Dosage: 500 UG, BID
  3. NISIS [Suspect]
     Indication: HYPERTENSION
     Dosage: 80 MG, QD
     Route: 048
     Dates: start: 20040101
  4. TAREG [Suspect]
     Indication: HYPERTENSION
     Dosage: 80 MG, QD
     Route: 048
     Dates: start: 20000101, end: 20040101

REACTIONS (4)
  - ACUTE RESPIRATORY FAILURE [None]
  - CHRONIC OBSTRUCTIVE AIRWAYS DISEASE EXACERBATED [None]
  - INTERSTITIAL LUNG DISEASE [None]
  - PNEUMONIA CHLAMYDIAL [None]
